FAERS Safety Report 8083375-4 (Version None)
Quarter: 2012Q1

REPORT INFORMATION
  Report Type: 
  Country: None (occurrence: None)
  Receive Date: 20120127
  Receipt Date: 20110117
  Transmission Date: 20120608
  Serious: No
  Sender: FDA-Public Use
  Company Number: US-ABBOTT-11P-163-0697987-00

PATIENT
  Age: 57 Year
  Sex: Male

DRUGS (4)
  1. METHOTREXATE [Concomitant]
     Indication: PSORIASIS
     Dosage: WEEKLY
     Route: 048
  2. HUMIRA [Suspect]
     Indication: PSORIASIS
     Dates: start: 20101101
  3. NAPROXEN [Concomitant]
     Indication: ARTHRITIS
     Dosage: DAILY AS NEEDED
  4. FOLIC ACID [Concomitant]
     Indication: PSORIASIS

REACTIONS (3)
  - NASOPHARYNGITIS [None]
  - SNEEZING [None]
  - NASAL CONGESTION [None]
